FAERS Safety Report 12047427 (Version 1)
Quarter: 2016Q1

REPORT INFORMATION
  Report Type: Other
  Country: IT (occurrence: IT)
  Receive Date: 20160209
  Receipt Date: 20160209
  Transmission Date: 20160526
  Serious: Yes (Other)
  Sender: FDA-Public Use
  Company Number: IT-LUPIN PHARMACEUTICALS INC.-2015-03624

PATIENT
  Age: 12 Year
  Sex: Male

DRUGS (1)
  1. CEFIXORAL [Suspect]
     Active Substance: CEFIXIME
     Indication: OROPHARYNGEAL PAIN
     Route: 065

REACTIONS (1)
  - Erythema multiforme [Unknown]
